FAERS Safety Report 20776164 (Version 1)
Quarter: 2022Q2

REPORT INFORMATION
  Report Type: Spontaneous
  Country: US (occurrence: US)
  Receive Date: 20220502
  Receipt Date: 20220502
  Transmission Date: 20220721
  Serious: No
  Sender: FDA-Public Use
  Company Number: US-HORIZON THERAPEUTICS-HZN-2021-002072

PATIENT
  Age: 61 Year
  Sex: Female

DRUGS (1)
  1. DUEXIS [Suspect]
     Active Substance: FAMOTIDINE\IBUPROFEN
     Indication: Rotator cuff syndrome
     Dosage: 800/26.6 MG
     Route: 065

REACTIONS (1)
  - Meniscus injury [Unknown]

NARRATIVE: CASE EVENT DATE: 20210429
